FAERS Safety Report 9356504 (Version 1)
Quarter: 2013Q2

REPORT INFORMATION
  Report Type: Spontaneous
  Country: CH (occurrence: None)
  Receive Date: 20130614
  Receipt Date: 20130614
  Transmission Date: 20140414
  Serious: Yes (Other)
  Sender: FDA-Public Use
  Company Number: 2013P1007359

PATIENT
  Age: 48 Year
  Sex: Male

DRUGS (3)
  1. HYDROCHLOROTHIAZIDE [Suspect]
     Indication: HYPERTENSION
  2. UNSPECIFIED DRUG [Concomitant]
  3. COMBINED WITH HYDROCHLOROTHIAZIDE (CO-N.) [Concomitant]

REACTIONS (3)
  - Retinal detachment [None]
  - Choroidal effusion [None]
  - Retinal detachment [None]
